FAERS Safety Report 14397892 (Version 1)
Quarter: 2018Q1

REPORT INFORMATION
  Report Type: Spontaneous
  Country: US (occurrence: US)
  Receive Date: 20180116
  Receipt Date: 20180116
  Transmission Date: 20180509
  Serious: No
  Sender: FDA-Public Use
  Company Number: US-ALLERGAN-1773319US

PATIENT
  Age: 35 Year
  Sex: Female

DRUGS (2)
  1. BOTOX [Suspect]
     Active Substance: ONABOTULINUMTOXINA
     Indication: TORTICOLLIS
     Dosage: 350 UNITS OR MORE, SINGLE
     Route: 030
     Dates: start: 20171130, end: 20171130
  2. BOTOX [Suspect]
     Active Substance: ONABOTULINUMTOXINA
     Indication: MIGRAINE
     Dosage: 350 UNITS, SINGLE
     Route: 030
     Dates: start: 20170907, end: 20170907

REACTIONS (6)
  - Facial paralysis [Not Recovered/Not Resolved]
  - Product administered at inappropriate site [Unknown]
  - Condition aggravated [Not Recovered/Not Resolved]
  - Jaw disorder [Not Recovered/Not Resolved]
  - Joint dislocation [Not Recovered/Not Resolved]
  - Muscular weakness [Not Recovered/Not Resolved]

NARRATIVE: CASE EVENT DATE: 201709
